FAERS Safety Report 8376508-3 (Version None)
Quarter: 2012Q1

REPORT INFORMATION
  Report Type: 
  Country: None (occurrence: None)
  Receive Date: 20120323
  Receipt Date: 20111121
  Transmission Date: 20120608
  Serious: Yes (Hospitalization, Other)
  Sender: FDA-Public Use
  Company Number: 163-21880-11080956

PATIENT
  Age: 54 Year
  Sex: Female

DRUGS (10)
  1. DEXAMETHASONE [Concomitant]
  2. WARFARIN SODIUM [Concomitant]
  3. DOXYCYCLINE [Concomitant]
  4. REVLIMID [Suspect]
  5. REVLIMID [Suspect]
     Indication: MULTIPLE MYELOMA
     Dosage: 10;15 MG, 1 IN 1 D, PO
     Route: 048
     Dates: start: 20100915
  6. REVLIMID [Suspect]
     Indication: MULTIPLE MYELOMA
     Dosage: 10;15 MG, 1 IN 1 D, PO
     Route: 048
     Dates: start: 20101203, end: 20110811
  7. REVLIMID [Suspect]
     Indication: MULTIPLE MYELOMA
     Dosage: 10;15 MG, 1 IN 1 D, PO
     Route: 048
     Dates: start: 20101007
  8. ASPIRIN [Concomitant]
  9. LEVAQUIN [Concomitant]
  10. AUGMENTIN '125' [Concomitant]

REACTIONS (2)
  - ALOPECIA [None]
  - DIARRHOEA [None]
